FAERS Safety Report 7346070-2 (Version None)
Quarter: 2011Q1

REPORT INFORMATION
  Report Type: 
  Country: None (occurrence: None)
  Receive Date: 20110301
  Receipt Date: 20110224
  Transmission Date: 20110831
  Serious: Yes (Other)
  Sender: FDA-Public Use
  Company Number: WAES 1102BEL00012

PATIENT
  Age: 56 Year
  Sex: Female

DRUGS (2)
  1. METFORMIN [Concomitant]
  2. JANUVIA [Suspect]
     Indication: TYPE 2 DIABETES MELLITUS
     Dosage: 100 MG/DAILY
     Route: 048

REACTIONS (1)
  - HYPOGLYCAEMIA [None]
